FAERS Safety Report 10622450 (Version 1)
Quarter: 2014Q4

REPORT INFORMATION
  Report Type: Spontaneous
  Country: DK (occurrence: FR)
  Receive Date: 20141203
  Receipt Date: 20141203
  Transmission Date: 20150529
  Serious: Yes (Hospitalization)
  Sender: FDA-Public Use
  Company Number: FR-FRI-1000072793

PATIENT
  Age: 17 Year
  Sex: Female

DRUGS (3)
  1. DAFALGAN CODEINE [Suspect]
     Active Substance: ACETAMINOPHEN\CODEINE PHOSPHATE
     Indication: PRODUCT USED FOR UNKNOWN INDICATION
     Dosage: OVERDOSE OF 16 GRAMS ONCE
     Route: 048
     Dates: start: 20131118, end: 20131118
  2. ESCITALOPRAM [Suspect]
     Active Substance: ESCITALOPRAM OXALATE
     Indication: PRODUCT USED FOR UNKNOWN INDICATION
     Dosage: OVERDOSE OF 5 TABLETS OF 10 MG ONCE
     Route: 048
     Dates: start: 20131118, end: 20131118
  3. LOXAPAC [Suspect]
     Active Substance: LOXAPINE SUCCINATE
     Indication: PRODUCT USED FOR UNKNOWN INDICATION
     Dosage: OVERDOSE OF 5 DF ONCE
     Route: 048
     Dates: start: 20131118, end: 20131118

REACTIONS (8)
  - Hypotension [Recovered/Resolved]
  - Hypothermia [Recovered/Resolved]
  - Intentional overdose [None]
  - Analgesic drug level increased [Recovered/Resolved]
  - Overdose [Recovered/Resolved]
  - Tachycardia [Recovered/Resolved]
  - Poisoning deliberate [Recovered/Resolved]
  - Toxicity to various agents [Recovered/Resolved]

NARRATIVE: CASE EVENT DATE: 20131118
